FAERS Safety Report 23716854 (Version 1)
Quarter: 2024Q2

REPORT INFORMATION
  Report Type: Report from Study
  Country: FR (occurrence: None)
  Receive Date: 20240408
  Receipt Date: 20240408
  Transmission Date: 20240716
  Serious: Yes (Other)
  Sender: FDA-Public Use
  Company Number: 2024A076976

PATIENT

DRUGS (2)
  1. TAGRISSO [Suspect]
     Active Substance: OSIMERTINIB
     Indication: Non-small cell lung cancer
     Route: 048
  2. GEFITINIB [Suspect]
     Active Substance: GEFITINIB
     Route: 048

REACTIONS (4)
  - Toxicity to various agents [Unknown]
  - Drug resistance mutation [Unknown]
  - Drug ineffective [Unknown]
  - Off label use [Unknown]
